FAERS Safety Report 6161209-2 (Version None)
Quarter: 2009Q2

REPORT INFORMATION
  Report Type: 
  Country: None (occurrence: None)
  Receive Date: 20090421
  Receipt Date: 20090420
  Transmission Date: 20091009
  Serious: Yes (Death)
  Sender: FDA-Public Use
  Company Number: TW-B.I. PHARMACEUTICALS,INC./RIDGEFIELD-2009-SG-00159SG

PATIENT
  Sex: Male
  Weight: 59 kg

DRUGS (5)
  1. TIOTROPIUM INH. POWDER [Suspect]
     Indication: CHRONIC OBSTRUCTIVE PULMONARY DISEASE
     Dosage: 18MCG
     Route: 055
     Dates: start: 20090227
  2. XANTHIUM [Concomitant]
     Indication: CHRONIC OBSTRUCTIVE PULMONARY DISEASE
     Dosage: 1 CAP PO Q12HR
     Route: 048
     Dates: start: 20090227
  3. BRICANYL [Concomitant]
     Indication: CHRONIC OBSTRUCTIVE PULMONARY DISEASE
     Dosage: 2 PUFFS TID PRN
     Route: 055
     Dates: start: 20090227
  4. MEDICON-A [Concomitant]
     Indication: COUGH
     Dosage: 1 CAP PO TID
     Route: 048
     Dates: start: 20090227
  5. C.B.M. SOLN [Concomitant]
     Indication: COUGH
     Dosage: 5 CC PO TID
     Route: 048
     Dates: start: 20090227

REACTIONS (1)
  - ACUTE MYOCARDIAL INFARCTION [None]
